FAERS Safety Report 9371698 (Version 3)
Quarter: 2014Q1

REPORT INFORMATION
  Report Type: Spontaneous
  Country: US (occurrence: US)
  Receive Date: 20130627
  Receipt Date: 20140207
  Transmission Date: 20141002
  Serious: No
  Sender: FDA-Public Use
  Company Number: US-PFIZER INC-2013189585

PATIENT
  Age: 62 Year
  Sex: Female
  Weight: 58.96 kg

DRUGS (15)
  1. XELJANZ [Suspect]
     Indication: RHEUMATOID ARTHRITIS
     Dosage: 5 MG, 2X/DAY
     Route: 048
  2. CYMBALTA [Concomitant]
     Dosage: 60 MG
  3. CENTRUM SILVER [Concomitant]
     Dosage: UNK
  4. MELOXICAM [Concomitant]
     Dosage: 7.5 MG
  5. METHOTREXATE [Concomitant]
     Dosage: 2.5 MG
  6. PREDNISONE [Concomitant]
     Dosage: 5 MG
  7. NEURONTIN [Concomitant]
     Dosage: 300 MG
  8. VICODIN [Concomitant]
     Dosage: HYDROCODONE BITARTRATE 5 MG- PARACETAMOL-500MG
  9. PRAVASTATIN [Concomitant]
     Dosage: 10 MG
  10. FOLIC ACID [Concomitant]
     Dosage: 1 MG
  11. HYDROCHLOROTHIAZID [Concomitant]
     Dosage: 25 MG
  12. VITAMIN D [Concomitant]
     Dosage: 400 IU
  13. FISH OIL [Concomitant]
     Dosage: UNK
  14. CALCIUM CARBONATE [Concomitant]
     Dosage: 10 G
  15. CO-Q-10 [Concomitant]
     Dosage: 150 MG

REACTIONS (2)
  - Fatigue [Unknown]
  - Musculoskeletal stiffness [Unknown]
